FAERS Safety Report 18364593 (Version 1)
Quarter: 2020Q4

REPORT INFORMATION
  Report Type: Spontaneous
  Country: US (occurrence: US)
  Receive Date: 20201008
  Receipt Date: 20201008
  Transmission Date: 20210114
  Serious: No
  Sender: FDA-Public Use
  Company Number: None

PATIENT
  Age: 64 Year
  Sex: Female

DRUGS (3)
  1. ZAFI RLU KAST [Concomitant]
  2. L-THYROXINE. [Concomitant]
  3. HUMIRA [Suspect]
     Active Substance: ADALIMUMAB
     Indication: PSORIATIC ARTHROPATHY
     Route: 030
     Dates: start: 20200603, end: 20201008

REACTIONS (3)
  - Dehydration [None]
  - Metastases to lymph nodes [None]
  - Diverticulitis [None]

NARRATIVE: CASE EVENT DATE: 20201008
